FAERS Safety Report 7050453-8 (Version None)
Quarter: 2010Q4

REPORT INFORMATION
  Report Type: 
  Country: None (occurrence: None)
  Receive Date: 20101018
  Receipt Date: 20101002
  Transmission Date: 20110411
  Serious: Yes (Other)
  Sender: FDA-Public Use
  Company Number: PHHY2010FR66636

PATIENT
  Sex: Male

DRUGS (2)
  1. VALSARTAN  AND HYDROCHLOROTHIAZIDE [Suspect]
     Indication: HYPERTENSION
     Dosage: 80/12.5 MG ONCE PER DAY
  2. VALSARTAN  AND HYDROCHLOROTHIAZIDE [Suspect]
     Dosage: 160 MG/UNSPECIFIED DOSAGE

REACTIONS (4)
  - BLOOD IRON INCREASED [None]
  - DIZZINESS [None]
  - HAEMOCHROMATOSIS [None]
  - NAUSEA [None]
